FAERS Safety Report 14194673 (Version 1)
Quarter: 2017Q4

REPORT INFORMATION
  Report Type: Spontaneous
  Country: US (occurrence: None)
  Receive Date: 20171115
  Receipt Date: 20171115
  Transmission Date: 20180321
  Serious: Yes (Hospitalization)
  Sender: FDA-Public Use
  Company Number: None

PATIENT
  Age: 65 Year
  Sex: Female

DRUGS (13)
  1. MAGNESIUM [Concomitant]
     Active Substance: MAGNESIUM
  2. AMITRIPTYLIN [Concomitant]
     Active Substance: AMITRIPTYLINE
  3. LEVOTHYROXIN [Concomitant]
     Active Substance: LEVOTHYROXINE
  4. FOLIC ACID. [Concomitant]
     Active Substance: FOLIC ACID
  5. SPIRONOLACT [Concomitant]
     Active Substance: SPIRONOLACTONE
  6. URSODIOL. [Concomitant]
     Active Substance: URSODIOL
  7. XIFAXAN [Concomitant]
     Active Substance: RIFAXIMIN
  8. CEPHALEXIN. [Concomitant]
     Active Substance: CEPHALEXIN
  9. FERROUS SULF [Concomitant]
     Active Substance: FERROUS SULFATE
  10. FUROSEMIDE. [Concomitant]
     Active Substance: FUROSEMIDE
  11. OCALIVA [Suspect]
     Active Substance: OBETICHOLIC ACID
     Indication: BILIARY CIRRHOSIS PRIMARY
     Route: 048
     Dates: start: 20161014
  12. OMEPRAZOLE. [Concomitant]
     Active Substance: OMEPRAZOLE
  13. VITAMIN D3 [Concomitant]
     Active Substance: CHOLECALCIFEROL

REACTIONS (1)
  - Liver disorder [None]

NARRATIVE: CASE EVENT DATE: 20171026
